FAERS Safety Report 7939619-X (Version None)
Quarter: 2011Q4

REPORT INFORMATION
  Report Type: 
  Country: None (occurrence: None)
  Receive Date: 20111125
  Receipt Date: 20111114
  Transmission Date: 20120403
  Serious: Yes (Hospitalization, Other)
  Sender: FDA-Public Use
  Company Number: PHHY2011FI90912

PATIENT
  Age: 64 Year
  Sex: Female

DRUGS (17)
  1. VENTOLIN [Concomitant]
     Indication: ASTHMA
  2. GLIMEPIRIDE [Concomitant]
     Indication: TYPE 2 DIABETES MELLITUS
  3. PERPHENAZINE [Concomitant]
  4. SIMVASTATIN [Concomitant]
     Dosage: 20 MG ONCE A DAY
  5. CLOZAPINE [Suspect]
     Indication: SCHIZOPHRENIA
     Dosage: 300 MG/DAY (50 MG + 250 MG)
     Dates: start: 20110902
  6. OLANZAPINE [Concomitant]
     Dosage: 20 MG IN EVENING
  7. SYMBICORT [Concomitant]
     Indication: ASTHMA
  8. LEVOZIN [Concomitant]
  9. THYROXIN [Concomitant]
     Indication: HYPOTHYROIDISM
  10. DIFLUCAN [Concomitant]
     Dosage: 1 DF,
  11. LORAZEPAM [Concomitant]
     Dosage: 2 MG, TID
  12. PRIMASPAN [Concomitant]
     Dosage: 100 MG, QD
  13. VAGIFEM [Concomitant]
  14. PREDNISOLONE [Concomitant]
     Dates: start: 20110930
  15. METFORMIN [Concomitant]
     Indication: TYPE 2 DIABETES MELLITUS
  16. VALPROIC ACID [Concomitant]
  17. NEXIUM [Concomitant]
     Indication: OESOPHAGITIS

REACTIONS (18)
  - ERYTHEMA [None]
  - OEDEMA PERIPHERAL [None]
  - C-REACTIVE PROTEIN INCREASED [None]
  - TRANSFERRIN INCREASED [None]
  - EOSINOPHIL COUNT INCREASED [None]
  - HAEMATOCRIT DECREASED [None]
  - MUSCLE TWITCHING [None]
  - MUSCLE MASS [None]
  - SKIN REACTION [None]
  - DRUG HYPERSENSITIVITY [None]
  - HAEMATOCHEZIA [None]
  - RED BLOOD CELL SEDIMENTATION RATE INCREASED [None]
  - HISTONE ANTIBODY POSITIVE [None]
  - ANAEMIA [None]
  - LOGORRHOEA [None]
  - ERYTHEMA MIGRANS [None]
  - CANDIDIASIS [None]
  - PRURITUS [None]
